FAERS Safety Report 9202301 (Version 1)
Quarter: 2013Q2

REPORT INFORMATION
  Report Type: Spontaneous
  Country: GB (occurrence: GB)
  Receive Date: 20130401
  Receipt Date: 20130401
  Transmission Date: 20140414
  Serious: Yes (Death, Life-Threatening, Hospitalization)
  Sender: FDA-Public Use
  Company Number: PHHY2013GB030586

PATIENT
  Age: 75 Year
  Sex: Male
  Weight: 65 kg

DRUGS (9)
  1. LAMOTRIGINE [Suspect]
     Indication: CONVULSION
     Dosage: 50MG MORNING, 25MG EVENING
     Route: 048
     Dates: start: 20130128, end: 20130311
  2. DEPIXOL [Concomitant]
  3. FERROUS GLUCONATE [Concomitant]
  4. LEVOTHYROXINE [Concomitant]
  5. BISOPROLOL [Concomitant]
  6. CLOPIDOGREL [Concomitant]
  7. RAMIPRIL [Concomitant]
  8. SIMVASTATIN [Concomitant]
  9. DIPROBASE CREAM [Concomitant]

REACTIONS (7)
  - Left ventricular dysfunction [Fatal]
  - Hypothermia [Not Recovered/Not Resolved]
  - Renal impairment [Not Recovered/Not Resolved]
  - Electrolyte imbalance [Not Recovered/Not Resolved]
  - Pulmonary oedema [Not Recovered/Not Resolved]
  - Skin exfoliation [Not Recovered/Not Resolved]
  - Condition aggravated [Not Recovered/Not Resolved]
